FAERS Safety Report 23180787 (Version 3)
Quarter: 2024Q2

REPORT INFORMATION
  Report Type: Spontaneous
  Country: IT (occurrence: IT)
  Receive Date: 20231114
  Receipt Date: 20240404
  Transmission Date: 20240716
  Serious: Yes (Other)
  Sender: FDA-Public Use
  Company Number: None

PATIENT
  Age: 89 Year
  Sex: Female

DRUGS (5)
  1. EDOXABAN TOSYLATE [Suspect]
     Active Substance: EDOXABAN TOSYLATE
     Indication: Atrial fibrillation
     Dosage: 30 MG, QD (LIXIANA*28CPR RIV 30MG ? 1 CP/DIE PER COMPROMISSIONE RENALE MODERATA (CRCL 50 ML/MIN))
     Route: 048
     Dates: start: 20210126, end: 202106
  2. SINEMET [Concomitant]
     Active Substance: CARBIDOPA\LEVODOPA
     Indication: Parkinson^s disease
     Dosage: 0.5 DF, BID (SINEMET*50CPR 100MG+25MG- ? CP TWICE DAILY)
     Route: 048
     Dates: start: 2021
  3. OLMESARTAN E IDROCLOROTIAZIDE EG [Concomitant]
     Indication: Hypertensive heart disease
     Dosage: 1 DF, QD (OLMESARTAN+ID EG* 20MG+25MG 28CPR - 1 CP/DAY)
     Route: 048
     Dates: start: 2021
  4. BISOPROLOL [Concomitant]
     Active Substance: BISOPROLOL\BISOPROLOL FUMARATE
     Indication: Hypertensive heart disease
     Dosage: 1 UNK, QD (BISOPROLOL SDZ* 2.5MG 28CPR - 1 CP/DAY)
     Route: 048
     Dates: start: 2021
  5. SERTRALINE HYDROCHLORIDE [Concomitant]
     Active Substance: SERTRALINE HYDROCHLORIDE
     Indication: Major depression
     Dosage: 1 DF, QD (SERTRALINE DOC*100MG 30CPR - 1 CP/DAY)
     Route: 048
     Dates: start: 2021

REACTIONS (2)
  - Renal failure [Recovered/Resolved]
  - Glomerular filtration rate decreased [Recovered/Resolved]

NARRATIVE: CASE EVENT DATE: 20210501
